FAERS Safety Report 26144865 (Version 2)
Quarter: 2025Q4

REPORT INFORMATION
  Report Type: Spontaneous
  Country: JP (occurrence: JP)
  Receive Date: 20251211
  Receipt Date: 20251230
  Transmission Date: 20260117
  Serious: Yes (Life-Threatening, Hospitalization)
  Sender: ROCHE
  Company Number: JP-CHUGAI-2025033995

PATIENT
  Age: 92 Year
  Sex: Male
  Weight: 62.5 kg

DRUGS (18)
  1. ACTEMRA [Suspect]
     Active Substance: TOCILIZUMAB
     Indication: Rheumatoid arthritis
     Route: 058
     Dates: start: 20231018, end: 20250726
  2. PREDONINE [Suspect]
     Active Substance: PREDNISOLONE
     Indication: Product used for unknown indication
     Dosage: 1.5 MILLIGRAM, QD
     Route: 048
  3. JARDIANCE [Suspect]
     Active Substance: EMPAGLIFLOZIN
     Indication: Product used for unknown indication
     Route: 048
     Dates: start: 20250131, end: 20250728
  4. AZOSEMIDE [Concomitant]
     Active Substance: AZOSEMIDE
  5. LINAGLIPTIN [Concomitant]
     Active Substance: LINAGLIPTIN
  6. AMLODIPINE BESYLATE [Concomitant]
     Active Substance: AMLODIPINE BESYLATE
  7. OLOPATADINE [OLOPATADINE HYDROCHLORIDE] [Concomitant]
  8. EDOXABAN TOSYLATE [Concomitant]
     Active Substance: EDOXABAN TOSYLATE
  9. LOXOPROFEN SODIUM DIHYDRATE [Concomitant]
     Active Substance: LOXOPROFEN SODIUM DIHYDRATE
  10. MAGNESIUM OXIDE [Concomitant]
     Active Substance: MAGNESIUM OXIDE
  11. LANSOPRAZOLE [Concomitant]
     Active Substance: LANSOPRAZOLE
  12. AMITIZA [Concomitant]
     Active Substance: LUBIPROSTONE
  13. PEMAFIBRATE [Concomitant]
     Active Substance: PEMAFIBRATE
  14. LIMAPROST [Concomitant]
     Active Substance: LIMAPROST
  15. ACETAMINOPHEN\TRAMADOL HYDROCHLORIDE [Concomitant]
     Active Substance: ACETAMINOPHEN\TRAMADOL HYDROCHLORIDE
  16. SENNOSIDES A AND B [Concomitant]
     Active Substance: SENNOSIDES A AND B
  17. KAYEXALATE [Concomitant]
     Active Substance: SODIUM POLYSTYRENE SULFONATE
  18. ELOBIXIBAT [Concomitant]
     Active Substance: ELOBIXIBAT

REACTIONS (3)
  - Septic shock [Recovering/Resolving]
  - Multiple organ dysfunction syndrome [Recovered/Resolved]
  - Escherichia pyelonephritis [Recovered/Resolved]

NARRATIVE: CASE EVENT DATE: 20250726
